FAERS Safety Report 4815987-2 (Version None)
Quarter: 2005Q4

REPORT INFORMATION
  Report Type: 
  Country: None (occurrence: None)
  Receive Date: 20051031
  Receipt Date: 20051021
  Transmission Date: 20060501
  Serious: Yes (Death)
  Sender: FDA-Public Use
  Company Number: US-ROCHE-422298

PATIENT
  Age: 34 Year
  Sex: Female

DRUGS (1)
  1. ACCUTANE [Suspect]
     Indication: DRUG USE FOR UNKNOWN INDICATION
     Route: 048
     Dates: start: 20040802, end: 20050107

REACTIONS (4)
  - DEATH [None]
  - HEPATITIS [None]
  - LUNG NEOPLASM MALIGNANT [None]
  - PNEUMONIA [None]
